FAERS Safety Report 13331890 (Version 1)
Quarter: 2017Q1

REPORT INFORMATION
  Report Type: Spontaneous
  Country: US (occurrence: US)
  Receive Date: 20170314
  Receipt Date: 20170314
  Transmission Date: 20170428
  Serious: No
  Sender: FDA-Public Use
  Company Number: US-JNJFOC-20170206950

PATIENT
  Sex: Female
  Weight: 72 kg

DRUGS (3)
  1. TYLENOL [Suspect]
     Active Substance: ACETAMINOPHEN
     Indication: PREMEDICATION
     Route: 065
     Dates: start: 20160829
  2. INFLECTRA [Concomitant]
     Active Substance: INFLIXIMAB-DYYB
     Indication: PSORIATIC ARTHROPATHY
     Route: 042
  3. TYLENOL [Suspect]
     Active Substance: ACETAMINOPHEN
     Route: 065

REACTIONS (1)
  - Product use issue [Unknown]

NARRATIVE: CASE EVENT DATE: 20160829
